FAERS Safety Report 5532520-0 (Version None)
Quarter: 2007Q4

REPORT INFORMATION
  Report Type: 
  Country: None (occurrence: None)
  Receive Date: 20071203
  Receipt Date: 20071121
  Transmission Date: 20080405
  Serious: Yes (Other)
  Sender: FDA-Public Use
  Company Number: US-PFIZER INC-2007100187

PATIENT
  Sex: Female
  Weight: 44.09 kg

DRUGS (5)
  1. CHANTIX [Suspect]
     Indication: EX-SMOKER
     Dosage: TEXT:EVERY DAY
     Dates: start: 20071108, end: 20071117
  2. VYTORIN [Concomitant]
  3. LISINOPRIL [Concomitant]
  4. ARICEPT [Concomitant]
  5. CILOSTAZOL [Concomitant]

REACTIONS (2)
  - DELUSIONAL DISORDER, UNSPECIFIED TYPE [None]
  - HYPERSOMNIA [None]
